FAERS Safety Report 19488005 (Version 2)
Quarter: 2021Q3

REPORT INFORMATION
  Report Type: Report from Study
  Country: US (occurrence: US)
  Receive Date: 20210702
  Receipt Date: 20210712
  Transmission Date: 20211014
  Serious: Yes (Hospitalization, Other)
  Sender: FDA-Public Use
  Company Number: US-BAYER-2021-168323

PATIENT
  Age: 68 Year
  Sex: Female
  Weight: 65.76 kg

DRUGS (4)
  1. ADEMPAS [Suspect]
     Active Substance: RIOCIGUAT
     Indication: PULMONARY ARTERIAL HYPERTENSION
     Dosage: UNK
     Dates: start: 20201123
  2. ADEMPAS [Suspect]
     Active Substance: RIOCIGUAT
     Indication: PULMONARY ARTERIAL HYPERTENSION
     Dosage: 2.5 MG, TID
     Route: 048
  3. UPTRAVI [Concomitant]
     Active Substance: SELEXIPAG
     Dosage: UNK
  4. OPSUMIT [Concomitant]
     Active Substance: MACITENTAN
     Dosage: UNK

REACTIONS (9)
  - Peripheral swelling [Unknown]
  - Pharyngitis streptococcal [None]
  - Bursitis [None]
  - Anaemia [None]
  - Oedema [None]
  - Joint effusion [None]
  - Pain in extremity [None]
  - Pyrexia [None]
  - Blood potassium decreased [None]

NARRATIVE: CASE EVENT DATE: 20210621
